FAERS Safety Report 8297886-X (Version None)
Quarter: 2012Q2

REPORT INFORMATION
  Report Type: 
  Country: None (occurrence: None)
  Receive Date: 20120419
  Receipt Date: 20120411
  Transmission Date: 20120825
  Serious: Yes (Hospitalization)
  Sender: FDA-Public Use
  Company Number: PHHY2011US32021

PATIENT
  Sex: Female
  Weight: 97 kg

DRUGS (3)
  1. ADDERALL 5 [Concomitant]
     Indication: SLEEP DISORDER
  2. GILENYA [Suspect]
     Indication: MULTIPLE SCLEROSIS
     Dosage: 0.5 MG, QD
     Route: 048
     Dates: start: 20110325
  3. GILENYA [Suspect]
     Dosage: 0.5 MG, QD
     Route: 048
     Dates: start: 20120404

REACTIONS (7)
  - MUSCULAR WEAKNESS [None]
  - FALL [None]
  - BALANCE DISORDER [None]
  - MENTAL DISORDER [None]
  - DIZZINESS [None]
  - BACK PAIN [None]
  - ARTHRALGIA [None]
